FAERS Safety Report 10688012 (Version 3)
Quarter: 2015Q2

REPORT INFORMATION
  Report Type: Spontaneous
  Country: IT (occurrence: IT)
  Receive Date: 20150102
  Receipt Date: 20150410
  Transmission Date: 20150821
  Serious: Yes (Other)
  Sender: FDA-Public Use
  Company Number: IT-SA-2014SA156894

PATIENT
  Age: 73 Year
  Sex: Female

DRUGS (7)
  1. LANOXIN [Concomitant]
     Active Substance: DIGOXIN
  2. LASIX [Concomitant]
     Active Substance: FUROSEMIDE
  3. CARDIOASPIRIN [Suspect]
     Active Substance: ASPIRIN
     Indication: PROPHYLAXIS
     Dosage: STRENGTH  :100 MG DOSE:1 UNIT(S)
     Route: 048
     Dates: start: 20120116, end: 20140923
  4. CARVEDILOL. [Concomitant]
     Active Substance: CARVEDILOL
  5. PLAVIX [Suspect]
     Active Substance: CLOPIDOGREL BISULFATE
     Route: 065
  6. COUMADIN [Suspect]
     Active Substance: WARFARIN SODIUM
     Indication: PROPHYLAXIS
     Dosage: STRENGTH  :5 MG DOSE:1 UNIT(S)
     Route: 048
     Dates: start: 20100101, end: 20140923
  7. ANTRA [Concomitant]
     Active Substance: OMEPRAZOLE

REACTIONS (2)
  - International normalised ratio increased [Unknown]
  - Rectal haemorrhage [Unknown]

NARRATIVE: CASE EVENT DATE: 20140923
